FAERS Safety Report 9337994 (Version 1)
Quarter: 2013Q2

REPORT INFORMATION
  Report Type: Spontaneous
  Country: GB (occurrence: GB)
  Receive Date: 20130609
  Receipt Date: 20130609
  Transmission Date: 20140414
  Serious: Yes (Hospitalization)
  Sender: FDA-Public Use
  Company Number: GB-MYLANLABS-2013S1011738

PATIENT
  Sex: 0
  Weight: 98 kg

DRUGS (4)
  1. RISPERIDONE [Suspect]
     Indication: ANXIETY
     Dates: start: 2011, end: 2013
  2. RISPERIDONE [Suspect]
     Indication: PANIC ATTACK
     Dates: start: 2011, end: 2013
  3. RISPERIDONE [Suspect]
     Indication: POST-TRAUMATIC STRESS DISORDER
     Dates: start: 2011, end: 2013
  4. CITALOPRAM [Concomitant]
     Indication: POST-TRAUMATIC STRESS DISORDER

REACTIONS (9)
  - Chest pain [Recovered/Resolved]
  - Confusional state [Recovered/Resolved]
  - Emotional distress [Recovered/Resolved]
  - Memory impairment [Recovered/Resolved]
  - Irritability [Recovered/Resolved]
  - Pain in extremity [Recovered/Resolved]
  - Psychotic disorder [Recovered/Resolved]
  - Syncope [Recovered/Resolved]
  - Thrombosis [Unknown]
